FAERS Safety Report 8280642-6 (Version None)
Quarter: 2012Q2

REPORT INFORMATION
  Report Type: 
  Country: None (occurrence: None)
  Receive Date: 20120412
  Receipt Date: 20110304
  Transmission Date: 20120825
  Serious: No
  Sender: FDA-Public Use
  Company Number: US-ASTRAZENECA-2011SE12360

PATIENT
  Age: 6844 Day
  Sex: Female
  Weight: 42.4 kg

DRUGS (14)
  1. NEXIUM [Suspect]
     Route: 048
  2. FLONASE [Concomitant]
  3. ADVAIR DISKUS 100/50 [Concomitant]
  4. CARAFATE [Concomitant]
  5. MELATONIN [Concomitant]
  6. NEXIUM [Suspect]
     Route: 048
  7. LORATADINE [Concomitant]
  8. ALBUTEROL [Concomitant]
  9. NEXIUM [Suspect]
     Route: 048
  10. PRILOSEC [Suspect]
     Route: 048
  11. PRILOSEC [Suspect]
     Dosage: ADDITIONAL OTC PRILOSEC AT NIGHT
     Route: 048
  12. EMETROL [Concomitant]
  13. NEXIUM [Suspect]
     Route: 048
  14. PROPRANOLOL [Concomitant]

REACTIONS (19)
  - SINUSITIS [None]
  - FATIGUE [None]
  - ABDOMINAL PAIN [None]
  - HEADACHE [None]
  - WEIGHT DECREASED [None]
  - DYSPEPSIA [None]
  - INFLUENZA [None]
  - ABDOMINAL PAIN UPPER [None]
  - DYSPHAGIA [None]
  - PAIN [None]
  - OESOPHAGITIS [None]
  - REGURGITATION [None]
  - VOMITING [None]
  - DECREASED APPETITE [None]
  - GASTROOESOPHAGEAL REFLUX DISEASE [None]
  - CONSTIPATION [None]
  - OESOPHAGEAL FOOD IMPACTION [None]
  - NAUSEA [None]
  - DRUG INEFFECTIVE [None]
